FAERS Safety Report 21886373 (Version 1)
Quarter: 2023Q1

REPORT INFORMATION
  Report Type: Spontaneous
  Country: ES (occurrence: ES)
  Receive Date: 20230119
  Receipt Date: 20230119
  Transmission Date: 20230418
  Serious: Yes (Other)
  Sender: FDA-Public Use
  Company Number: None

PATIENT

DRUGS (8)
  1. FLUTICASONE FUROATE\VILANTEROL TRIFENATATE [Suspect]
     Active Substance: FLUTICASONE FUROATE\VILANTEROL TRIFENATATE
     Indication: Asthma
     Dosage: 1 PUFF(S), QD 1.0 PUFF C/24 H
     Route: 065
     Dates: start: 20221206
  2. EBASTEL FORTE [Concomitant]
     Indication: Asthma
     Dosage: 20 MG, 20.0 MG DE
     Route: 048
     Dates: start: 20191128
  3. ALPRAZOLAM CINFA [Concomitant]
     Indication: Generalised anxiety disorder
     Dosage: 0.25 MG, QD (0.25 MG C/24 H AM)
     Route: 048
     Dates: start: 20210409
  4. LANSOPRAZOLE [Concomitant]
     Active Substance: LANSOPRAZOLE
     Indication: Peripheral venous disease
     Dosage: 15 MG TOTAL 15.0 MG
     Route: 048
     Dates: start: 20210410
  5. VENTOLIN [Concomitant]
     Active Substance: ALBUTEROL SULFATE
     Indication: Asthma
     Dosage: 100 MCG/MG, QID 100.0 MCG EVERY 8 HOURS
     Route: 065
     Dates: start: 20171227
  6. FLUTICASONE PROPIONATE [Concomitant]
     Active Substance: FLUTICASONE PROPIONATE
     Indication: Product used for unknown indication
     Dosage: 100 MCG/MG, QD
     Route: 065
     Dates: start: 20220407
  7. FLUOXETINE HYDROCHLORIDE [Concomitant]
     Active Substance: FLUOXETINE HYDROCHLORIDE
     Indication: Anxiety
     Dosage: 20 MG,  20.0 MG DE
     Route: 048
     Dates: start: 20160910
  8. VALTREX [Concomitant]
     Active Substance: VALACYCLOVIR HYDROCHLORIDE
     Indication: Genital herpes
     Dosage: 1000 MG, WE 1000.0 MG W/WEDNESDAY
     Route: 048
     Dates: start: 20220406

REACTIONS (2)
  - Hypotension [Recovered/Resolved]
  - Tachycardia [Recovered/Resolved]

NARRATIVE: CASE EVENT DATE: 20221207
